FAERS Safety Report 15497903 (Version 2)
Quarter: 2018Q4

REPORT INFORMATION
  Report Type: Spontaneous
  Country: US (occurrence: US)
  Receive Date: 20181015
  Receipt Date: 20181126
  Transmission Date: 20190205
  Serious: No
  Sender: FDA-Public Use
  Company Number: US-PFIZER INC-2018410372

PATIENT
  Age: 68 Year
  Sex: Male

DRUGS (1)
  1. GENOTROPIN [Suspect]
     Active Substance: SOMATROPIN
     Indication: GROWTH HORMONE DEFICIENCY
     Dosage: 0.2 MG, DAILY
     Route: 058

REACTIONS (3)
  - Device issue [Unknown]
  - Product dose omission [Not Recovered/Not Resolved]
  - Somnolence [Not Recovered/Not Resolved]
